FAERS Safety Report 12394078 (Version 1)
Quarter: 2016Q2

REPORT INFORMATION
  Report Type: Spontaneous
  Country: BR (occurrence: BR)
  Receive Date: 20160523
  Receipt Date: 20160523
  Transmission Date: 20160815
  Serious: Yes (Other)
  Sender: FDA-Public Use
  Company Number: BR-BAYER-2015-400940

PATIENT
  Age: 35 Year
  Sex: Female

DRUGS (2)
  1. MIRENA [Suspect]
     Active Substance: LEVONORGESTREL
     Indication: CONTRACEPTION
     Dosage: 20 ?G, CONT
     Route: 015
     Dates: start: 201202
  2. MIRENA [Suspect]
     Active Substance: LEVONORGESTREL
     Indication: MENORRHAGIA

REACTIONS (8)
  - Drug ineffective [None]
  - Haemorrhage in pregnancy [Not Recovered/Not Resolved]
  - Amenorrhoea [Recovered/Resolved]
  - Hypomenorrhoea [Recovered/Resolved]
  - Breech presentation [None]
  - Pregnancy with contraceptive device [Recovered/Resolved]
  - Retroplacental haematoma [Recovered/Resolved]
  - Procedural pain [None]

NARRATIVE: CASE EVENT DATE: 2012
